FAERS Safety Report 4369991-1 (Version None)
Quarter: 2004Q2

REPORT INFORMATION
  Report Type: 
  Country: None (occurrence: None)
  Receive Date: 20040603
  Receipt Date: 20040527
  Transmission Date: 20050107
  Serious: Yes (Disabling)
  Sender: FDA-Public Use
  Company Number: CA-GLAXOSMITHKLINE-A0512641A

PATIENT
  Age: 55 Year
  Sex: Male
  Weight: 84.9 kg

DRUGS (3)
  1. ZIAGEN [Suspect]
     Indication: HIV INFECTION
     Route: 048
     Dates: start: 20040206
  2. 3TC [Concomitant]
     Indication: HIV INFECTION
     Route: 048
     Dates: start: 20020927
  3. SUSTIVA [Concomitant]
     Indication: HIV INFECTION
     Route: 065
     Dates: start: 20020927

REACTIONS (1)
  - PAROTID GLAND ENLARGEMENT [None]
